FAERS Safety Report 5898613-3 (Version None)
Quarter: 2008Q3

REPORT INFORMATION
  Report Type: 
  Country: None (occurrence: None)
  Receive Date: 20080925
  Receipt Date: 20080227
  Transmission Date: 20090109
  Serious: No
  Sender: FDA-Public Use
  Company Number: A0712246A

PATIENT
  Sex: Female

DRUGS (2)
  1. WELLBUTRIN XL [Suspect]
     Indication: DRUG USE FOR UNKNOWN INDICATION
     Route: 048
     Dates: start: 20060101
  2. IBUPROFEN [Concomitant]

REACTIONS (1)
  - ARTHRALGIA [None]
